FAERS Safety Report 8234270-9 (Version None)
Quarter: 2012Q1

REPORT INFORMATION
  Report Type: 
  Country: None (occurrence: None)
  Receive Date: 20120326
  Receipt Date: 20120315
  Transmission Date: 20120608
  Serious: Yes (Other)
  Sender: FDA-Public Use
  Company Number: GB-TEVA-329630ISR

PATIENT
  Age: 53 Year
  Sex: Female

DRUGS (1)
  1. BISOPROLOL FUMARATE [Suspect]
     Dosage: 5 MG, QD
     Route: 048
     Dates: start: 20120302, end: 20120304

REACTIONS (1)
  - DEAFNESS [None]
